FAERS Safety Report 23706235 (Version 1)
Quarter: 2024Q2

REPORT INFORMATION
  Report Type: Other
  Country: FR (occurrence: FR)
  Receive Date: 20240404
  Receipt Date: 20240404
  Transmission Date: 20240716
  Serious: Yes (Other)
  Sender: FDA-Public Use
  Company Number: 2024IBSA00419

PATIENT
  Age: 70 Year
  Sex: Male

DRUGS (4)
  1. DICLOFENAC [Suspect]
     Active Substance: DICLOFENAC
     Indication: Pain
     Dosage: 2 DOSAGE FORM, QD
     Route: 003
     Dates: start: 20240213, end: 20240220
  2. ASCORBIC ACID\CHLORHEXIDINE GLUCONATE\TETRACAINE HYDROCHLORIDE [Suspect]
     Active Substance: ASCORBIC ACID\CHLORHEXIDINE GLUCONATE\TETRACAINE HYDROCHLORIDE
     Indication: Pain
     Dosage: 45 MILLILITER, QD
     Route: 002
     Dates: start: 20240213, end: 20240220
  3. AUGMENTIN [Suspect]
     Active Substance: AMOXICILLIN\CLAVULANATE POTASSIUM
     Indication: Infection
     Dosage: 3 DOSAGE FORM
     Route: 042
     Dates: start: 20240224, end: 20240227
  4. AMOXICILLIN [Suspect]
     Active Substance: AMOXICILLIN
     Indication: Infection
     Dosage: 3 GRAM, QD
     Route: 048
     Dates: start: 20240213, end: 20240220

REACTIONS (1)
  - Aphthous ulcer [Recovered/Resolved]

NARRATIVE: CASE EVENT DATE: 20240226
